FAERS Safety Report 8580485-X (Version None)
Quarter: 2012Q3

REPORT INFORMATION
  Report Type: 
  Country: None (occurrence: None)
  Receive Date: 20120808
  Receipt Date: 20120801
  Transmission Date: 20120928
  Serious: Yes (Death, Hospitalization)
  Sender: FDA-Public Use
  Company Number: FR-PFIZER INC-2012190889

PATIENT
  Age: 87 Year
  Sex: Female

DRUGS (10)
  1. SPIRONOLACTONE [Concomitant]
  2. ATENOLOL [Suspect]
     Indication: PRODUCT USED FOR UNKNOWN INDICATION
     Dosage: 75 MG, DAILY
     Route: 048
  3. ADANCOR [Concomitant]
  4. RAMIPRIL [Suspect]
     Indication: PRODUCT USED FOR UNKNOWN INDICATION
     Dosage: 5 MG, DAILY
     Route: 048
  5. COUMADIN [Concomitant]
     Dosage: UNK
  6. ACETAMINOPHEN [Concomitant]
  7. LEVOTHYROXINE SODIUM [Concomitant]
     Dosage: UNK
  8. LASIX [Concomitant]
  9. CITALOPRAM HYDROBROMIDE [Concomitant]
  10. DURAGESIC-100 [Concomitant]

REACTIONS (5)
  - DEHYDRATION [None]
  - RENAL FAILURE ACUTE [None]
  - MALNUTRITION [None]
  - OVERDOSE [None]
  - BRADYCARDIA [None]
